FAERS Safety Report 6006363-8 (Version None)
Quarter: 2008Q4

REPORT INFORMATION
  Report Type: 
  Country: None (occurrence: None)
  Receive Date: 20081217
  Receipt Date: 20080317
  Transmission Date: 20090506
  Serious: Yes (Other)
  Sender: FDA-Public Use
  Company Number: US-BAXTER-2008BH001709

PATIENT

DRUGS (7)
  1. GAMMAGARD LIQUID [Suspect]
     Indication: IMMUNODEFICIENCY COMMON VARIABLE
     Dosage: DOSE UNIT:UNKNOWN
     Route: 065
  2. POLYGAM S/D [Suspect]
     Indication: PRIMARY IMMUNODEFICIENCY SYNDROME
     Dosage: DOSE UNIT:UNKNOWN
     Route: 042
  3. OCTAGAM [Suspect]
     Indication: PRIMARY IMMUNODEFICIENCY SYNDROME
     Dosage: DOSE UNIT:UNKNOWN
     Route: 042
  4. VIVAGLOBIN [Suspect]
     Indication: PRIMARY IMMUNODEFICIENCY SYNDROME
     Dosage: DOSE UNIT:UNKNOWN
     Route: 042
  5. ACETAMINOPHEN [Concomitant]
     Indication: PREMEDICATION
     Route: 065
  6. DIPHENHYDRAMINE HCL [Concomitant]
     Indication: PREMEDICATION
     Route: 042
  7. PHENERGAN HCL [Concomitant]
     Indication: PREMEDICATION
     Route: 042

REACTIONS (4)
  - ANAPHYLACTOID REACTION [None]
  - DRUG INTOLERANCE [None]
  - EYE PAIN [None]
  - SWELLING FACE [None]
